FAERS Safety Report 11534325 (Version 1)
Quarter: 2015Q3

REPORT INFORMATION
  Report Type: Spontaneous
  Country: US (occurrence: None)
  Receive Date: 20150921
  Receipt Date: 20150921
  Transmission Date: 20151125
  Serious: Yes (Other)
  Sender: FDA-Public Use
  Company Number: None

PATIENT
  Age: 42 Year
  Sex: Female

DRUGS (1)
  1. MYCOPHENOLATE [Suspect]
     Active Substance: MYCOPHENOLIC ACID

REACTIONS (5)
  - Condition aggravated [None]
  - Product quality issue [None]
  - Chest pain [None]
  - Fatigue [None]
  - Flushing [None]

NARRATIVE: CASE EVENT DATE: 20150916
